FAERS Safety Report 5579119-8 (Version None)
Quarter: 2007Q4

REPORT INFORMATION
  Report Type: 
  Country: None (occurrence: None)
  Receive Date: 20071228
  Receipt Date: 20071228
  Transmission Date: 20080405
  Serious: No
  Sender: FDA-Public Use
  Company Number: None

PATIENT
  Age: 48 Year
  Sex: Female
  Weight: 58.9676 kg

DRUGS (1)
  1. ZOLPIDEM [Suspect]
     Indication: INSOMNIA
     Dosage: ONE PILL BEFORE BEDTIME  5 NIGHTS
     Dates: start: 20070502, end: 20070508

REACTIONS (5)
  - ABNORMAL SLEEP-RELATED EVENT [None]
  - ACCIDENT [None]
  - AMNESIA [None]
  - FEELING DRUNK [None]
  - SOMNAMBULISM [None]
